FAERS Safety Report 10156454 (Version 1)
Quarter: 2014Q2

REPORT INFORMATION
  Report Type: Spontaneous
  Country: FR (occurrence: FR)
  Receive Date: 20140507
  Receipt Date: 20140507
  Transmission Date: 20141212
  Serious: Yes (Hospitalization, Other)
  Sender: FDA-Public Use
  Company Number: FR-ASTRAZENECA-2014SE29788

PATIENT
  Age: 964 Month
  Sex: Male
  Weight: 98 kg

DRUGS (7)
  1. CRESTOR [Suspect]
     Indication: DYSLIPIDAEMIA
     Route: 048
  2. CRESTOR [Suspect]
     Indication: HYPERCHOLESTEROLAEMIA
     Route: 048
  3. OLMETEC [Suspect]
     Indication: HYPERTENSION
     Route: 048
     Dates: end: 20140216
  4. KARDEGIC [Suspect]
     Indication: MYOCARDIAL ISCHAEMIA
     Dosage: 75 MG, AT MIDDAY
     Route: 048
  5. PARIET [Suspect]
     Route: 048
     Dates: end: 20140216
  6. ALFUZOSINE [Suspect]
     Indication: BENIGN PROSTATIC HYPERPLASIA
     Route: 048
  7. LASILIX [Concomitant]
     Indication: HYPERTENSION

REACTIONS (10)
  - Generalised oedema [Recovering/Resolving]
  - Malaise [Unknown]
  - Respiratory failure [Unknown]
  - Renal failure acute [Recovered/Resolved]
  - Loss of consciousness [Unknown]
  - Peripheral venous disease [Unknown]
  - Cardiomegaly [Unknown]
  - Arrhythmia supraventricular [Unknown]
  - Gamma-glutamyltransferase increased [Unknown]
  - Creatinine renal clearance decreased [Unknown]
